FAERS Safety Report 17159508 (Version 1)
Quarter: 2019Q4

REPORT INFORMATION
  Report Type: Spontaneous
  Country: NL (occurrence: DE)
  Receive Date: 20191216
  Receipt Date: 20191216
  Transmission Date: 20200122
  Serious: Yes (Hospitalization)
  Sender: FDA-Public Use
  Company Number: DE-BAYER-2019-220834

PATIENT
  Age: 81 Year
  Sex: Male

DRUGS (1)
  1. GADOVIST [Suspect]
     Active Substance: GADOBUTROL
     Dosage: 17:00 UHR BIS 17:50 UHR
     Route: 042
     Dates: start: 20191125, end: 20191125

REACTIONS (4)
  - Pharyngeal swelling [Not Recovered/Not Resolved]
  - Dyspnoea [Not Recovered/Not Resolved]
  - Urticaria [Not Recovered/Not Resolved]
  - Condition aggravated [Not Recovered/Not Resolved]

NARRATIVE: CASE EVENT DATE: 20191125
